FAERS Safety Report 6859304-5 (Version None)
Quarter: 2010Q3

REPORT INFORMATION
  Report Type: 
  Country: None (occurrence: None)
  Receive Date: 20100719
  Receipt Date: 20080225
  Transmission Date: 20110219
  Serious: No
  Sender: FDA-Public Use
  Company Number: US-PFIZER INC-2008018912

PATIENT
  Sex: Female
  Weight: 68.2 kg

DRUGS (2)
  1. CHANTIX [Suspect]
     Indication: SMOKING CESSATION THERAPY
     Route: 048
     Dates: start: 20080210
  2. PROGESTERONE [Concomitant]
     Route: 061
     Dates: start: 20080201

REACTIONS (1)
  - HEADACHE [None]
